FAERS Safety Report 17566978 (Version 1)
Quarter: 2020Q1

REPORT INFORMATION
  Report Type: Report from Study
  Country: None (occurrence: AU)
  Receive Date: 20200320
  Receipt Date: 20200320
  Transmission Date: 20200409
  Serious: Yes (Death, Other)
  Sender: FDA-Public Use
  Company Number: AU-ABBVIE-19P-008-2932382-00

PATIENT
  Age: 77 Year
  Sex: Female

DRUGS (2)
  1. VENETOCLAX. [Suspect]
     Active Substance: VENETOCLAX
     Indication: MANTLE CELL LYMPHOMA
     Route: 048
     Dates: start: 20190814
  2. VENETOCLAX. [Suspect]
     Active Substance: VENETOCLAX
     Route: 048

REACTIONS (5)
  - Cytopenia [Unknown]
  - Neutropenia [Unknown]
  - Pancytopenia [Fatal]
  - Bone marrow failure [Unknown]
  - Sepsis [Unknown]
